FAERS Safety Report 5452631-8 (Version None)
Quarter: 2007Q3

REPORT INFORMATION
  Report Type: 
  Country: None (occurrence: None)
  Receive Date: 20070914
  Receipt Date: 20070910
  Transmission Date: 20080115
  Serious: Yes (Hospitalization)
  Sender: FDA-Public Use
  Company Number: FR-AVENTIS-200714234EU

PATIENT
  Age: 75 Year
  Sex: Female

DRUGS (3)
  1. FLUDEX                             /00340101/ [Suspect]
     Indication: ESSENTIAL HYPERTENSION
     Route: 048
     Dates: end: 20070519
  2. ACETAMINOPHEN [Concomitant]
  3. TARKA [Concomitant]

REACTIONS (12)
  - ASTHENIA [None]
  - BACK PAIN [None]
  - CEREBRAL ATROPHY [None]
  - CONFUSIONAL STATE [None]
  - DEPRESSED LEVEL OF CONSCIOUSNESS [None]
  - DISORIENTATION [None]
  - FALL [None]
  - HYPONATRAEMIA [None]
  - MENTAL STATUS CHANGES [None]
  - POLYDIPSIA [None]
  - SOMNOLENCE [None]
  - VOMITING [None]
